FAERS Safety Report 11659670 (Version 1)
Quarter: 2015Q4

REPORT INFORMATION
  Report Type: Spontaneous
  Country: US (occurrence: None)
  Receive Date: 20151023
  Receipt Date: 20151023
  Transmission Date: 20160304
  Serious: No
  Sender: FDA-Public Use
  Company Number: None

PATIENT
  Age: 36 Year
  Sex: Female

DRUGS (1)
  1. ENBREL [Suspect]
     Active Substance: ETANERCEPT
     Indication: RHEUMATOID ARTHRITIS
     Route: 058
     Dates: start: 20150504

REACTIONS (5)
  - Lip swelling [None]
  - Dyspnoea [None]
  - Rash [None]
  - Swollen tongue [None]
  - Swelling face [None]

NARRATIVE: CASE EVENT DATE: 20151021
